FAERS Safety Report 17077843 (Version 1)
Quarter: 2019Q4

REPORT INFORMATION
  Report Type: Spontaneous
  Country: SE (occurrence: SE)
  Receive Date: 20191126
  Receipt Date: 20191126
  Transmission Date: 20200122
  Serious: Yes (Other)
  Sender: FDA-Public Use
  Company Number: SE-JNJFOC-20191131496

PATIENT
  Age: 79 Year
  Sex: Male

DRUGS (2)
  1. TROMBYL [Concomitant]
     Active Substance: ASPIRIN
     Indication: STENOSIS
     Dosage: UNK
  2. RIVAROXABAN [Suspect]
     Active Substance: RIVAROXABAN
     Indication: STENOSIS
     Dosage: 2.5 MG, BID
     Route: 048

REACTIONS (1)
  - Cerebrovascular accident [Unknown]

NARRATIVE: CASE EVENT DATE: 20191118
